FAERS Safety Report 13423562 (Version 2)
Quarter: 2017Q2

REPORT INFORMATION
  Report Type: Report from Study
  Country: US (occurrence: US)
  Receive Date: 20170410
  Receipt Date: 20170511
  Transmission Date: 20170830
  Serious: No
  Sender: FDA-Public Use
  Company Number: US-009507513-1704USA001154

PATIENT
  Age: 53 Year
  Sex: Female

DRUGS (1)
  1. PEMBROLIZUMAB. [Suspect]
     Active Substance: PEMBROLIZUMAB
     Indication: MALIGNANT MELANOMA
     Dosage: UNK, Q3W
     Route: 042
     Dates: start: 20170203

REACTIONS (15)
  - Dysphonia [Unknown]
  - Asthenia [Unknown]
  - Dyspnoea [Recovering/Resolving]
  - Somnolence [Recovering/Resolving]
  - Pruritus [Unknown]
  - Pyrexia [Recovering/Resolving]
  - Throat tightness [Recovering/Resolving]
  - Vision blurred [Recovered/Resolved]
  - Blood pressure increased [Unknown]
  - Productive cough [Unknown]
  - Dysgeusia [Unknown]
  - Pain [Unknown]
  - Increased appetite [Unknown]
  - Headache [Recovering/Resolving]
  - Fatigue [Recovering/Resolving]

NARRATIVE: CASE EVENT DATE: 201702
